FAERS Safety Report 21993349 (Version 2)
Quarter: 2023Q1

REPORT INFORMATION
  Report Type: Report from Study
  Country: US (occurrence: US)
  Receive Date: 20230215
  Receipt Date: 20230306
  Transmission Date: 20230418
  Serious: Yes (Hospitalization)
  Sender: FDA-Public Use
  Company Number: US-AVEO ONCOLOGY-2023-AVEO-US000053

PATIENT

DRUGS (13)
  1. FOTIVDA [Suspect]
     Active Substance: TIVOZANIB HYDROCHLORIDE
     Indication: Renal cell carcinoma
     Dosage: 1.34 MG, DAILY FOR 21 DAYS WITH 7 DAYS OFF (28-DAY CYCLE)
     Route: 048
     Dates: start: 20221029, end: 202302
  2. MORPHINE [Suspect]
     Active Substance: MORPHINE
     Indication: Product used for unknown indication
     Route: 065
  3. NYSTATIN [Concomitant]
     Active Substance: NYSTATIN
     Route: 061
  4. VITAMIN D [Concomitant]
     Active Substance: VITAMIN D NOS
  5. EFFEXOR [Concomitant]
     Active Substance: VENLAFAXINE HYDROCHLORIDE
  6. TYLENOL EXTRA STRENGTH [Concomitant]
     Active Substance: ACETAMINOPHEN
  7. OXYCODONE [Concomitant]
     Active Substance: OXYCODONE
  8. BENADRYL [Concomitant]
     Active Substance: DIPHENHYDRAMINE HYDROCHLORIDE
  9. PAXIL [Concomitant]
     Active Substance: PAROXETINE HYDROCHLORIDE
  10. ATIVAN [Concomitant]
     Active Substance: LORAZEPAM
  11. LYRICA [Concomitant]
     Active Substance: PREGABALIN
  12. PHENERGAN [Concomitant]
     Active Substance: PROMETHAZINE HYDROCHLORIDE
  13. ELIQUIS [Concomitant]
     Active Substance: APIXABAN
     Dosage: 1 TABLET DAILY

REACTIONS (5)
  - Accidental overdose [Unknown]
  - Fall [Unknown]
  - Dizziness [Unknown]
  - Skin discolouration [Unknown]
  - Confusional state [Unknown]
